FAERS Safety Report 14023697 (Version 1)
Quarter: 2017Q3

REPORT INFORMATION
  Report Type: Spontaneous
  Country: US (occurrence: US)
  Receive Date: 20170928
  Receipt Date: 20170928
  Transmission Date: 20171128
  Serious: No
  Sender: FDA-Public Use
  Company Number: US-SA-2017SA029798

PATIENT
  Age: 61 Year
  Sex: Female

DRUGS (21)
  1. AUBAGIO [Suspect]
     Active Substance: TERIFLUNOMIDE
     Indication: MULTIPLE SCLEROSIS
     Route: 048
     Dates: start: 201606
  2. TOPAMAX [Concomitant]
     Active Substance: TOPIRAMATE
  3. TRAZODONE HYDROCHLORIDE. [Concomitant]
     Active Substance: TRAZODONE HYDROCHLORIDE
  4. LANSOPRAZOLE. [Concomitant]
     Active Substance: LANSOPRAZOLE
  5. KEPPRA [Concomitant]
     Active Substance: LEVETIRACETAM
  6. ASPIRIN. [Concomitant]
     Active Substance: ASPIRIN
  7. FOSAMAX [Concomitant]
     Active Substance: ALENDRONATE SODIUM
  8. CALCIUM CARBONATE. [Concomitant]
     Active Substance: CALCIUM CARBONATE
  9. LEVOTHYROXINE SODIUM. [Concomitant]
     Active Substance: LEVOTHYROXINE SODIUM
  10. LEVOCETIRIZINE DIHYDROCHLORIDE. [Concomitant]
     Active Substance: LEVOCETIRIZINE DIHYDROCHLORIDE
  11. XANAX [Concomitant]
     Active Substance: ALPRAZOLAM
  12. METHOCARBAMOL. [Concomitant]
     Active Substance: METHOCARBAMOL
  13. LAMICTAL [Concomitant]
     Active Substance: LAMOTRIGINE
  14. PENTOXIFYLLINE. [Concomitant]
     Active Substance: PENTOXIFYLLINE
  15. PLAVIX [Concomitant]
     Active Substance: CLOPIDOGREL BISULFATE
  16. VITAMIN D [Concomitant]
     Active Substance: CHOLECALCIFEROL
  17. BIOTIN [Concomitant]
     Active Substance: BIOTIN
  18. VITAMIN C [Concomitant]
     Active Substance: ASCORBIC ACID
  19. TYLENOL PM, EXTRA STRENGTH [Concomitant]
  20. CELEXA [Concomitant]
     Active Substance: CITALOPRAM HYDROBROMIDE
  21. IMITREX [Concomitant]
     Active Substance: SUMATRIPTAN SUCCINATE

REACTIONS (6)
  - Hypoaesthesia [Unknown]
  - Decreased appetite [Unknown]
  - Tremor [Unknown]
  - Fatigue [Unknown]
  - Band sensation [Recovered/Resolved]
  - Depressed mood [Unknown]
